FAERS Safety Report 22364693 (Version 7)
Quarter: 2024Q3

REPORT INFORMATION
  Report Type: Spontaneous
  Country: US (occurrence: US)
  Receive Date: 20230525
  Receipt Date: 20240814
  Transmission Date: 20241016
  Serious: Yes (Other)
  Sender: BRISTOL MYERS SQUIBB
  Company Number: US-BRISTOL-MYERS SQUIBB COMPANY-2023-070949

PATIENT
  Age: 82 Year
  Sex: Female

DRUGS (2)
  1. POMALYST [Suspect]
     Active Substance: POMALIDOMIDE
     Indication: Plasma cell myeloma
     Dosage: DAILY FOR 21 DAYS ON AND 7 DAYS OFF
     Route: 048
     Dates: start: 20230420
  2. POMALYST [Suspect]
     Active Substance: POMALIDOMIDE
     Indication: Plasma cell myeloma refractory
     Dosage: FREQUENCY: QD FOR 14 DAYS ON, 14 DAYS OFF
     Route: 048

REACTIONS (14)
  - Dizziness [Unknown]
  - Supraventricular tachycardia [Unknown]
  - Constipation [Unknown]
  - Dizziness postural [Unknown]
  - Balance disorder [Unknown]
  - Full blood count decreased [Unknown]
  - Neutrophil count decreased [Unknown]
  - Intentional product use issue [Unknown]
  - Tinnitus [Unknown]
  - Dysacusis [Unknown]
  - Off label use [Unknown]
  - Sinus congestion [Unknown]
  - Pain [Unknown]
  - Hypoacusis [Unknown]

NARRATIVE: CASE EVENT DATE: 20230420
